FAERS Safety Report 19089046 (Version 3)
Quarter: 2021Q4

REPORT INFORMATION
  Report Type: Report from Study
  Country: KE (occurrence: KE)
  Receive Date: 20210403
  Receipt Date: 20211228
  Transmission Date: 20220303
  Serious: Yes (Hospitalization, Other)
  Sender: FDA-Public Use
  Company Number: KE-CIPLA LTD.-2021KE02446

PATIENT

DRUGS (2)
  1. ABACAVIR\LAMIVUDINE [Suspect]
     Active Substance: ABACAVIR\LAMIVUDINE
     Indication: HIV infection WHO clinical stage III
     Dosage: 1.5 DOSAGE FORM, BID, 90MG/45MG BID DAILY
     Route: 048
     Dates: start: 20161128, end: 20181002
  2. LOPINAVIR\RITONAVIR [Suspect]
     Active Substance: LOPINAVIR\RITONAVIR
     Indication: HIV infection WHO clinical stage III
     Dosage: 3 DOSAGE FORM, BID, 120MG/30MG BID DAILY
     Route: 048
     Dates: start: 20161128, end: 20181002

REACTIONS (7)
  - Gastroenteritis [Recovered/Resolved]
  - Respiratory tract infection [Recovered/Resolved]
  - Rhinitis [Recovered/Resolved]
  - Dermatitis [Recovered/Resolved]
  - Abscess [Recovered/Resolved]
  - Nasopharyngitis [None]
  - Diarrhoea [Recovered/Resolved]

NARRATIVE: CASE EVENT DATE: 20161213
